FAERS Safety Report 8901407 (Version 1)
Quarter: 2012Q4

REPORT INFORMATION
  Report Type: 
  Country: IT (occurrence: IT)
  Receive Date: 20121108
  Receipt Date: 20121108
  Transmission Date: 20130627
  Serious: Yes (Disabling)
  Sender: FDA-Public Use
  Company Number: IT-VERTEX PHARMACEUTICAL INC.-2012-024235

PATIENT
  Age: 62 Year
  Sex: Female
  Weight: 72 kg

DRUGS (6)
  1. VX-950 [Suspect]
     Indication: CHRONIC HEPATITIS C
     Dosage: 750 mg, tid
     Route: 048
     Dates: start: 20121016, end: 20121029
  2. RIBAVIRIN [Concomitant]
     Indication: CHRONIC HEPATITIS C
     Dosage: 1000 mg, qd
     Route: 048
     Dates: start: 20121016, end: 20121029
  3. PEGINTERFERON ALFA-2A [Concomitant]
     Indication: CHRONIC HEPATITIS C
     Dosage: 180 ?g, qw
     Route: 030
     Dates: start: 20121016, end: 20121029
  4. PERINDOPRIL [Concomitant]
     Indication: HYPERTENSION
     Dosage: 5 mg, qd
     Route: 048
     Dates: start: 2010
  5. AMLODIPINE [Concomitant]
     Indication: HYPERTENSION
     Dosage: 5 mg, qd
     Route: 048
     Dates: start: 2010
  6. PROPRANOLOL [Concomitant]
     Indication: EXTRASYSTOLES
     Dosage: 20 mg, bid
     Route: 048
     Dates: start: 2011

REACTIONS (4)
  - Proctalgia [Unknown]
  - Anal fissure [Unknown]
  - Rectal haemorrhage [Unknown]
  - Haemorrhoidal haemorrhage [None]
